FAERS Safety Report 12771872 (Version 1)
Quarter: 2016Q3

REPORT INFORMATION
  Report Type: Report from Study
  Country: FR (occurrence: FR)
  Receive Date: 20160922
  Receipt Date: 20160922
  Transmission Date: 20161109
  Serious: Yes (Death, Other)
  Sender: FDA-Public Use
  Company Number: FR-BAYER-2016-178943

PATIENT
  Age: 50 Year

DRUGS (3)
  1. STREPTOZOTOCIN [Suspect]
     Active Substance: STREPTOZOCIN
     Indication: NEUROENDOCRINE TUMOUR
  2. DACARBAZINE. [Suspect]
     Active Substance: DACARBAZINE
     Indication: NEUROENDOCRINE TUMOUR
  3. 5 FLUOROURACIL [Suspect]
     Active Substance: FLUOROURACIL
     Indication: NEUROENDOCRINE TUMOUR

REACTIONS (1)
  - Haematotoxicity [Fatal]
